FAERS Safety Report 5483516-9 (Version None)
Quarter: 2007Q4

REPORT INFORMATION
  Report Type: 
  Country: None (occurrence: None)
  Receive Date: 20071009
  Receipt Date: 20070920
  Transmission Date: 20080405
  Serious: Yes (Hospitalization)
  Sender: FDA-Public Use
  Company Number: 8024339

PATIENT
  Age: 8 Year
  Sex: Male

DRUGS (4)
  1. METADATE CD [Suspect]
     Indication: ATTENTION DEFICIT/HYPERACTIVITY DISORDER
     Dosage: 20 MG 1/D PO
     Route: 048
     Dates: start: 20070604, end: 20070604
  2. DEPAKOTE [Concomitant]
  3. CLONIDINE [Concomitant]
  4. RISPERDAL [Concomitant]

REACTIONS (4)
  - AGITATION [None]
  - FLUSHING [None]
  - HEART RATE INCREASED [None]
  - TREMOR [None]
